FAERS Safety Report 20771710 (Version 1)
Quarter: 2022Q2

REPORT INFORMATION
  Report Type: Spontaneous
  Country: US (occurrence: US)
  Receive Date: 20220430
  Receipt Date: 20220430
  Transmission Date: 20220720
  Serious: Yes (Hospitalization, Other)
  Sender: FDA-Public Use
  Company Number: US-TEVA-2022-US-2031414

PATIENT
  Age: 41 Year
  Sex: Female

DRUGS (1)
  1. PROAIR HFA [Suspect]
     Active Substance: ALBUTEROL SULFATE
     Dosage: FORM STRENGTH, ROUTE OF ADMIN AND DOSAGE: UNKNOWN
     Route: 065

REACTIONS (1)
  - Pneumonia [Unknown]
